FAERS Safety Report 15593777 (Version 1)
Quarter: 2018Q4

REPORT INFORMATION
  Report Type: Report from Study
  Country: US (occurrence: US)
  Receive Date: 20181107
  Receipt Date: 20181107
  Transmission Date: 20190205
  Serious: Yes (Hospitalization)
  Sender: FDA-Public Use
  Company Number: US-ADAMAS PHARMA, LLC-2018ADA02707

PATIENT
  Age: 71 Year
  Sex: Female

DRUGS (3)
  1. UNSPECIFIED LEVODOPA-BASED THERAPY [Concomitant]
  2. GOCOVRI [Suspect]
     Active Substance: AMANTADINE
     Indication: DYSKINESIA
     Dosage: 137 MG, 1X/DAY AT BEDTIME X7 DAYS
     Route: 048
     Dates: start: 20181003, end: 20181009
  3. GOCOVRI [Suspect]
     Active Substance: AMANTADINE
     Dosage: 274 MG, 1X/DAY AT BEDTIME
     Route: 048
     Dates: start: 20181010, end: 201810

REACTIONS (2)
  - Asthenia [Recovering/Resolving]
  - Hallucination [Recovering/Resolving]

NARRATIVE: CASE EVENT DATE: 201810
